FAERS Safety Report 15845803 (Version 1)
Quarter: 2019Q1

REPORT INFORMATION
  Report Type: Spontaneous
  Country: DE (occurrence: DE)
  Receive Date: 20190120
  Receipt Date: 20190120
  Transmission Date: 20190417
  Serious: Yes (Other)
  Sender: FDA-Public Use
  Company Number: DE-AUROBINDO-AUR-APL-2019-001332

PATIENT
  Age: 6 Decade
  Sex: Female

DRUGS (2)
  1. IBUPROFEN 400 MG FILM-COATED TABLET [Suspect]
     Active Substance: IBUPROFEN
     Indication: FIBROMYALGIA
     Dosage: USED FOR MANY YEARS (LONG-TERM MEDICATION)
     Route: 048
  2. VOLTAREN [Suspect]
     Active Substance: DICLOFENAC SODIUM
     Indication: FIBROMYALGIA
     Dosage: USED FOR MANY YEARS (LONG-TERM MEDICATION)
     Route: 048

REACTIONS (1)
  - Interstitial lung disease [Unknown]
